FAERS Safety Report 9835045 (Version 3)
Quarter: 2014Q2

REPORT INFORMATION
  Report Type: Spontaneous
  Country: US (occurrence: US)
  Receive Date: 20140122
  Receipt Date: 20140409
  Transmission Date: 20141212
  Serious: Yes (Hospitalization)
  Sender: FDA-Public Use
  Company Number: US-B.I. PHARMACEUTICALS,INC./RIDGEFIELD-2014-BI-02718BP

PATIENT
  Sex: Male
  Weight: 82.55 kg

DRUGS (10)
  1. PRADAXA [Suspect]
     Indication: ATRIAL FIBRILLATION
     Dosage: 300 MG
     Route: 048
     Dates: start: 20110526, end: 20111125
  2. PRADAXA [Suspect]
     Indication: ATRIAL FLUTTER
  3. OMEPRAZOLE [Concomitant]
     Dosage: 20 MG
     Route: 048
  4. METFORMIN [Concomitant]
     Dosage: 1700 MG
     Route: 048
  5. AMIODARON HCL [Concomitant]
     Dosage: 200 MG
     Route: 048
  6. LISINOPRIL [Concomitant]
     Dosage: 40 MG
     Route: 048
  7. CYANOCOBALAMIN [Concomitant]
     Dosage: 1000 MG
     Route: 048
  8. PRAVASTATIN [Concomitant]
     Indication: HYPERLIPIDAEMIA
     Dosage: 40 MG
     Route: 048
  9. ASPIRIN [Concomitant]
     Dosage: 162 MG
     Route: 048
  10. METOPROLOL [Concomitant]
     Dosage: 50 MG
     Route: 048

REACTIONS (3)
  - Gastrointestinal haemorrhage [Recovered/Resolved]
  - Haemorrhagic anaemia [Unknown]
  - Renal failure acute [Recovered/Resolved]
